FAERS Safety Report 8797249 (Version 1)
Quarter: 2012Q4

REPORT INFORMATION
  Report Type: 
  Country: US (occurrence: US)
  Receive Date: 20120919
  Receipt Date: 20120919
  Transmission Date: 20130627
  Serious: Yes (Other)
  Sender: FDA-Public Use
  Company Number: US-JNJFOC-20120904483

PATIENT
  Age: 85 Year
  Sex: Female
  Weight: 45.36 kg

DRUGS (2)
  1. NEOSPORIN [Suspect]
     Indication: WOUND
     Route: 061
     Dates: start: 201201, end: 2012
  2. UNKNOWN MEDICATION [Concomitant]
     Route: 065

REACTIONS (4)
  - Application site burn [Recovering/Resolving]
  - Application site infection [Recovering/Resolving]
  - Incorrect drug administration duration [Unknown]
  - Off label use [Unknown]
